FAERS Safety Report 8387529 (Version 8)
Quarter: 2016Q2

REPORT INFORMATION
  Report Type: Report from Study
  Country: BE (occurrence: BE)
  Receive Date: 20120202
  Receipt Date: 20160415
  Transmission Date: 20160815
  Serious: Yes (Hospitalization, Other)
  Sender: FDA-Public Use
  Company Number: PHHO2012BE001726

PATIENT
  Age: 47 Year
  Sex: Female
  Weight: 67 kg

DRUGS (17)
  1. MYFORTIC [Suspect]
     Active Substance: MYCOPHENOLATE SODIUM
     Indication: RENAL TRANSPLANT
     Dosage: 720 MG, BID
     Route: 048
     Dates: start: 20110502
  2. PREDNISOLONE. [Suspect]
     Active Substance: PREDNISOLONE
     Indication: RENAL TRANSPLANT
     Dosage: 4 MG, QD
     Route: 048
     Dates: start: 20110622, end: 20120813
  3. PREDNISOLONE. [Suspect]
     Active Substance: PREDNISOLONE
     Dosage: 32 MG, BID
     Route: 048
     Dates: start: 20120813, end: 20120814
  4. RAMIPRIL. [Suspect]
     Active Substance: RAMIPRIL
     Indication: HYPERTENSION
     Dosage: 2.5 MG, QD
     Route: 048
     Dates: start: 20110527, end: 20130109
  5. SIMVASTATINE [Concomitant]
     Active Substance: SIMVASTATIN
     Indication: PROPHYLAXIS
     Dosage: 10 MG, QD
     Dates: start: 20110608, end: 20130109
  6. INSULIN [Concomitant]
     Active Substance: INSULIN NOS
     Indication: DIABETES MELLITUS
     Route: 065
  7. PREDNISOLONE. [Suspect]
     Active Substance: PREDNISOLONE
     Dosage: 25 MG, QD
     Route: 048
     Dates: start: 20120817
  8. PREDNISOLONE. [Suspect]
     Active Substance: PREDNISOLONE
     Dosage: 10 MG, BID
     Route: 048
     Dates: start: 20130113
  9. RAMIPRIL. [Suspect]
     Active Substance: RAMIPRIL
     Dosage: 5 MG, QD
     Route: 048
     Dates: start: 201301
  10. CICLOSPORIN [Suspect]
     Active Substance: CYCLOSPORINE
     Indication: RENAL TRANSPLANT
     Dosage: 100 MG, BID
     Route: 065
     Dates: start: 20120814
  11. VITAMIN D3 [Concomitant]
     Active Substance: CHOLECALCIFEROL
     Indication: PRODUCT USED FOR UNKNOWN INDICATION
     Route: 065
  12. EVEROLIMUS [Suspect]
     Active Substance: EVEROLIMUS
     Indication: RENAL TRANSPLANT
     Dosage: 1 MG, BID
     Route: 048
     Dates: start: 20110806
  13. EVEROLIMUS [Suspect]
     Active Substance: EVEROLIMUS
     Dosage: 0.375 MG, QD
     Route: 048
  14. EVEROLIMUS [Suspect]
     Active Substance: EVEROLIMUS
     Dosage: 0.25 MG, BID
     Route: 048
     Dates: start: 20120809, end: 20120814
  15. EVEROLIMUS [Suspect]
     Active Substance: EVEROLIMUS
     Dosage: 0.25 MG, BID
     Route: 048
     Dates: start: 20120426
  16. PREDNISOLONE. [Suspect]
     Active Substance: PREDNISOLONE
     Dosage: 15 MG, BID
     Route: 048
     Dates: start: 201212, end: 20130109
  17. SIMVASTATINE [Concomitant]
     Active Substance: SIMVASTATIN
     Dosage: 20 MG, QD
     Dates: start: 20130110

REACTIONS (18)
  - Proteinuria [Unknown]
  - Cough [Recovering/Resolving]
  - Oedema peripheral [Recovered/Resolved]
  - Kidney transplant rejection [Recovering/Resolving]
  - Urinary tract infection [Not Recovered/Not Resolved]
  - Renal failure [Recovering/Resolving]
  - Pulmonary hypertension [Not Recovered/Not Resolved]
  - Bronchitis [Recovered/Resolved]
  - Urosepsis [Unknown]
  - Renal failure [Recovered/Resolved]
  - Diabetes mellitus [Not Recovered/Not Resolved]
  - Bronchitis [Recovered/Resolved]
  - Streptococcal urinary tract infection [Recovered/Resolved]
  - Trichomoniasis [Not Recovered/Not Resolved]
  - Pyrexia [Recovering/Resolving]
  - Inflammation [Recovering/Resolving]
  - C-reactive protein increased [Recovered/Resolved]
  - Hyperglycaemia [Recovered/Resolved]

NARRATIVE: CASE EVENT DATE: 20120116
